FAERS Safety Report 6355920-8 (Version None)
Quarter: 2009Q3

REPORT INFORMATION
  Report Type: 
  Country: None (occurrence: None)
  Receive Date: 20090914
  Receipt Date: 20090914
  Transmission Date: 20100115
  Serious: Yes (Hospitalization, Other)
  Sender: FDA-Public Use
  Company Number: None

PATIENT
  Sex: Male
  Weight: 103.8737 kg

DRUGS (1)
  1. LUPRON [Suspect]
     Indication: PROSTATE CANCER
     Dosage: 3 INJECTIONS 4 MONTHS APART OTHER
     Route: 050
     Dates: start: 20071111, end: 20080715

REACTIONS (20)
  - ARTHRALGIA [None]
  - BREAST TENDERNESS [None]
  - CARDIAC FAILURE CONGESTIVE [None]
  - DISCOMFORT [None]
  - DIZZINESS [None]
  - FATIGUE [None]
  - FLUID RETENTION [None]
  - GENITAL SWELLING [None]
  - GYNAECOMASTIA [None]
  - JOINT SWELLING [None]
  - MEMORY IMPAIRMENT [None]
  - MOOD ALTERED [None]
  - MYALGIA [None]
  - PAIN [None]
  - PAIN IN EXTREMITY [None]
  - QUALITY OF LIFE DECREASED [None]
  - RENAL INJURY [None]
  - SLEEP DISORDER [None]
  - SWELLING [None]
  - WEIGHT INCREASED [None]
